FAERS Safety Report 8406588-8 (Version None)
Quarter: 2012Q2

REPORT INFORMATION
  Report Type: 
  Country: None (occurrence: None)
  Receive Date: 20120529
  Receipt Date: 20070613
  Transmission Date: 20120825
  Serious: Yes (Hospitalization)
  Sender: FDA-Public Use
  Company Number: 02100-JPN-07-0393

PATIENT
  Age: 55 Year
  Sex: Female
  Weight: 55 kg

DRUGS (3)
  1. CARVEDILOL [Suspect]
     Dosage: 2.5 MG, QD, ORAL
     Route: 048
     Dates: start: 20070327, end: 20070412
  2. PLETAL [Suspect]
     Dosage: 100 MG, BID, ORAL
     Route: 048
     Dates: start: 20070330
  3. ASPIRIN [Suspect]
     Dosage: 100 MG, QD, ORAL
     Route: 048
     Dates: start: 20070327

REACTIONS (2)
  - RASH [None]
  - CORONARY ARTERY OCCLUSION [None]
